FAERS Safety Report 8058986-2 (Version None)
Quarter: 2012Q1

REPORT INFORMATION
  Report Type: 
  Country: None (occurrence: None)
  Receive Date: 20120120
  Receipt Date: 20110510
  Transmission Date: 20120608
  Serious: No
  Sender: FDA-Public Use
  Company Number: US-BAUSCH-2011BL003068

PATIENT
  Age: 40 Year
  Sex: Male

DRUGS (1)
  1. TOBRAMYCIN [Suspect]
     Indication: CONJUNCTIVITIS
     Route: 047
     Dates: start: 20110506

REACTIONS (4)
  - ABNORMAL SENSATION IN EYE [None]
  - OCULAR HYPERAEMIA [None]
  - EYE IRRITATION [None]
  - EYE PAIN [None]
